FAERS Safety Report 15506631 (Version 6)
Quarter: 2019Q3

REPORT INFORMATION
  Report Type: Spontaneous
  Country: GB (occurrence: GB)
  Receive Date: 20181016
  Receipt Date: 20190826
  Transmission Date: 20191004
  Serious: Yes (Other)
  Sender: FDA-Public Use
  Company Number: PHHY2018GB122144

PATIENT
  Age: 4 Month
  Sex: Female

DRUGS (23)
  1. CICLOSPORIN [Suspect]
     Active Substance: CYCLOSPORINE
     Indication: PROPHYLAXIS AGAINST GRAFT VERSUS HOST DISEASE
     Dosage: TROUGH TARGET 50-100 MMOL/L
     Route: 065
  2. TREOSULFAN [Suspect]
     Active Substance: TREOSULFAN
     Indication: IMMUNOSUPPRESSANT DRUG THERAPY
     Dosage: 36 G/M2, (FIRST TRANSPLANT: AGE 7 MONTHS)
     Route: 065
  3. BCG [Suspect]
     Active Substance: BCG VACCINE
     Indication: IMMUNISATION
     Route: 065
  4. URSODEOXYCHOLIC ACID [Concomitant]
     Active Substance: URSODIOL
     Indication: PRODUCT USED FOR UNKNOWN INDICATION
     Route: 065
  5. FLUDARABINE [Suspect]
     Active Substance: FLUDARABINE PHOSPHATE
     Dosage: 160 MG/M2 TOTAL DOSE; DAYS 27 TO 24)
     Route: 065
  6. FLUDARABINE [Suspect]
     Active Substance: FLUDARABINE PHOSPHATE
     Dosage: 150 MG/M2, SECOND TRANSPLANT: AGE 18 MONTHS
     Route: 065
  7. METHYLPREDNISOLONE. [Suspect]
     Active Substance: METHYLPREDNISOLONE
     Indication: IMMUNOSUPPRESSANT DRUG THERAPY
     Dosage: 2 MG/KG, DOSE AT THE TIME OF FIRST TRANSPLANT (AGE OF 18 MONTHS)
     Route: 065
  8. MYCOPHENOLATE MOFETIL. [Suspect]
     Active Substance: MYCOPHENOLATE MOFETIL
     Dosage: DURING 1ST TRANSPLANTATION
     Route: 065
  9. TACROLIMUS. [Suspect]
     Active Substance: TACROLIMUS
     Indication: PROPHYLAXIS AGAINST GRAFT VERSUS HOST DISEASE
     Dosage: UNK
     Route: 065
  10. HYDROCORTISONE. [Concomitant]
     Active Substance: HYDROCORTISONE
     Indication: IMMUNOSUPPRESSANT DRUG THERAPY
     Dosage: UNK
     Route: 065
     Dates: start: 201509, end: 201510
  11. METHYLPREDNISOLONE. [Suspect]
     Active Substance: METHYLPREDNISOLONE
     Dosage: 2 MG/KG, DOSE AT THE TIME OF FIRST TRANSPLANT (AGE OF 7 MONTHS)
     Route: 065
  12. MYCOPHENOLATE MOFETIL. [Suspect]
     Active Substance: MYCOPHENOLATE MOFETIL
     Indication: PROPHYLAXIS AGAINST GRAFT VERSUS HOST DISEASE
     Dosage: DURING 2ND TRANSPLANTATION
     Route: 065
  13. TREOSULFAN [Suspect]
     Active Substance: TREOSULFAN
     Dosage: 36-42 G/M2 TOTAL DOSE; DAYS 27 TO 25
     Route: 065
  14. ANTITHYMOCYTE IMMUNOGLOBULIN [Suspect]
     Active Substance: THYMOCYTE IMMUNE GLOBULIN NOS
     Indication: IMMUNOSUPPRESSANT DRUG THERAPY
     Dosage: (15 MG/KG TOTAL) WAS GIVEN OVER DAYS 25 TO 23
     Route: 065
  15. THIOTEPA. [Suspect]
     Active Substance: THIOTEPA
     Indication: IMMUNOSUPPRESSANT DRUG THERAPY
     Dosage: 15 MG/KG, SECOND TRANSPLANT: AGE 18 MONTHS
     Route: 065
  16. FLUDARABINE [Suspect]
     Active Substance: FLUDARABINE PHOSPHATE
     Indication: IMMUNOSUPPRESSANT DRUG THERAPY
     Dosage: 150 MG/M2, FIRST TRANSPLANT: AGE 7 MONTHS
     Route: 065
  17. THIOTEPA. [Suspect]
     Active Substance: THIOTEPA
     Dosage: 10 MG/KG; DAY 24
     Route: 065
  18. CIDOFOVIR. [Suspect]
     Active Substance: CIDOFOVIR
     Indication: IMMUNOSUPPRESSANT DRUG THERAPY
     Route: 065
  19. INFLIXIMAB [Suspect]
     Active Substance: INFLIXIMAB
     Indication: IMMUNOSUPPRESSANT DRUG THERAPY
     Dosage: DURING 2ND TRANSPLANTATION
     Route: 065
  20. INFLIXIMAB [Suspect]
     Active Substance: INFLIXIMAB
     Dosage: DURING 1ST TRANSPLANTATION
     Route: 065
  21. TREOSULFAN [Suspect]
     Active Substance: TREOSULFAN
     Dosage: 36 G/M2, (SECOND TRANSPLANT: AGE 18 MONTHS)
     Route: 065
  22. ALEMTUZUMAB [Suspect]
     Active Substance: ALEMTUZUMAB
     Indication: IMMUNOSUPPRESSANT DRUG THERAPY
     Dosage: 1 MG/KG, FIRST TRANSPLANT: AGE 7 MONTHS
     Route: 065
  23. ALEMTUZUMAB [Suspect]
     Active Substance: ALEMTUZUMAB
     Dosage: 0.3 MG/KG, LOW DOSE (SECOND TRANSPLANT: 18 MONTHS)
     Route: 065

REACTIONS (13)
  - Pneumonitis [Unknown]
  - Hypertension [Unknown]
  - Immune reconstitution inflammatory syndrome [Unknown]
  - Lymphadenopathy [Unknown]
  - Product use in unapproved indication [Unknown]
  - Gastroenteritis norovirus [Recovered/Resolved]
  - Vaccination site inflammation [Unknown]
  - Product use issue [Unknown]
  - Cytomegalovirus infection [Unknown]
  - Mucosal inflammation [Unknown]
  - Thrombotic microangiopathy [Unknown]
  - Adenovirus infection [Recovered/Resolved]
  - Off label use [Unknown]
